FAERS Safety Report 18898274 (Version 1)
Quarter: 2021Q1

REPORT INFORMATION
  Report Type: Spontaneous
  Country: US (occurrence: US)
  Receive Date: 20210213
  Receipt Date: 20210213
  Transmission Date: 20210420
  Serious: Yes (Hospitalization)
  Sender: FDA-Public Use
  Company Number: None

PATIENT
  Sex: Male
  Weight: 101.4 kg

DRUGS (1)
  1. ERBITUX [Suspect]
     Active Substance: CETUXIMAB

REACTIONS (4)
  - Coronary artery disease [None]
  - Tachycardia [None]
  - Coronary arterial stent insertion [None]
  - Cardiac operation [None]

NARRATIVE: CASE EVENT DATE: 20210112
